FAERS Safety Report 6923157-7 (Version None)
Quarter: 2010Q3

REPORT INFORMATION
  Report Type: 
  Country: None (occurrence: None)
  Receive Date: 20100813
  Receipt Date: 20100803
  Transmission Date: 20110219
  Serious: Yes (Hospitalization)
  Sender: FDA-Public Use
  Company Number: JP-ROCHE-707531

PATIENT
  Sex: Female
  Weight: 50 kg

DRUGS (20)
  1. HERCEPTIN [Suspect]
     Indication: BREAST CANCER RECURRENT
     Route: 041
     Dates: start: 20090219, end: 20090219
  2. HERCEPTIN [Suspect]
     Route: 041
     Dates: start: 20090226, end: 20090929
  3. HERCEPTIN [Suspect]
     Route: 041
     Dates: start: 20100410, end: 20100410
  4. HERCEPTIN [Suspect]
     Route: 041
     Dates: start: 20100417, end: 20100515
  5. HERCEPTIN [Suspect]
     Route: 041
     Dates: start: 20100601
  6. XELODA [Suspect]
     Indication: BREAST CANCER RECURRENT
     Dosage: 2 WEEKS ADMINISTRATION FOLLOWED BY 1 WEEK REST
     Route: 048
     Dates: start: 20091007, end: 20100124
  7. XELODA [Suspect]
     Dosage: 2 WEEKS ADMINISTRATION FOLLOWED BY 1 WEEK REST
     Route: 048
     Dates: start: 20100405, end: 20100519
  8. CYCLOPHOSPHAMIDE [Concomitant]
     Indication: BREAST CANCER
     Route: 048
     Dates: start: 20100127, end: 20100310
  9. CYCLOPHOSPHAMIDE [Concomitant]
     Route: 048
     Dates: start: 20100405, end: 20100519
  10. LENDORMIN [Concomitant]
     Route: 048
     Dates: start: 20080614
  11. DEPAS [Concomitant]
     Route: 048
     Dates: start: 20081115
  12. TAXOL [Concomitant]
     Route: 042
     Dates: start: 20090416, end: 20090528
  13. FARMORUBICIN [Concomitant]
     Route: 042
     Dates: start: 20100127, end: 20100310
  14. FLUOROURACIL [Concomitant]
     Route: 041
     Dates: start: 20100127, end: 20100310
  15. METHYCOBAL [Concomitant]
     Route: 048
     Dates: start: 20090726
  16. NAVELBINE [Concomitant]
     Route: 042
     Dates: start: 20090905, end: 20090929
  17. TYKERB [Concomitant]
     Route: 048
     Dates: start: 20091007, end: 20100124
  18. GOSHAJINKIGAN [Concomitant]
     Dosage: FORM:GRANULATED POWDER
     Route: 048
     Dates: start: 20100204
  19. MS CONTIN [Concomitant]
     Dosage: FORM:SUSTAINED RELEASE TABLET
     Route: 048
     Dates: start: 20100401, end: 20100502
  20. CYCLOPHOSPHAMIDE [Concomitant]
     Route: 048
     Dates: start: 20100405, end: 20100519

REACTIONS (3)
  - BILE DUCT OBSTRUCTION [None]
  - BREAST DISORDER [None]
  - PALMAR-PLANTAR ERYTHRODYSAESTHESIA SYNDROME [None]
